FAERS Safety Report 8866497 (Version 3)
Quarter: 2014Q2

REPORT INFORMATION
  Report Type: Spontaneous
  Country: PL (occurrence: PL)
  Receive Date: 20121025
  Receipt Date: 20140519
  Transmission Date: 20141212
  Serious: Yes (Other)
  Sender: FDA-Public Use
  Company Number: PL-ROCHE-1147703

PATIENT
  Age: 31 Year
  Sex: Female
  Weight: 45 kg

DRUGS (11)
  1. OMALIZUMAB [Suspect]
     Indication: ASTHMA
     Route: 065
     Dates: start: 2006
  2. OMALIZUMAB [Suspect]
     Route: 065
     Dates: start: 2007
  3. FORMOTEROL [Suspect]
     Indication: ASTHMA
     Route: 065
  4. FORMOTEROL [Suspect]
     Route: 065
  5. BUDESONIDE [Suspect]
     Indication: ASTHMA
     Route: 065
  6. PREDNISONE [Suspect]
     Indication: ASTHMA
     Route: 065
     Dates: start: 2006
  7. PREDNISONE [Suspect]
     Route: 065
  8. PREDNISONE [Suspect]
     Route: 065
  9. SALBUTAMOL [Suspect]
     Indication: ASTHMA
     Route: 065
  10. BUDESONIDE/FORMOTEROL FUMARATE [Concomitant]
  11. FLUTICASONE [Concomitant]

REACTIONS (3)
  - Abortion spontaneous [Unknown]
  - Asthma [Unknown]
  - Maternal exposure during pregnancy [Unknown]
